FAERS Safety Report 8108928-6 (Version None)
Quarter: 2012Q1

REPORT INFORMATION
  Report Type: 
  Country: None (occurrence: None)
  Receive Date: 20120202
  Receipt Date: 20120124
  Transmission Date: 20120608
  Serious: Yes (Other)
  Sender: FDA-Public Use
  Company Number: AT-GLAXOSMITHKLINE-B0777707A

PATIENT
  Sex: Female

DRUGS (1)
  1. VALTREX [Suspect]
     Indication: KERATITIS HERPETIC
     Route: 065

REACTIONS (4)
  - SPEECH DISORDER [None]
  - DYSPHAGIA [None]
  - DYSPHONIA [None]
  - MOOD ALTERED [None]
